FAERS Safety Report 15612506 (Version 1)
Quarter: 2018Q4

REPORT INFORMATION
  Report Type: Spontaneous
  Country: US (occurrence: US)
  Receive Date: 20181107
  Receipt Date: 20181107
  Transmission Date: 20190205
  Serious: Yes (Hospitalization)
  Sender: FDA-Public Use
  Company Number: None

PATIENT
  Age: 65 Year
  Sex: Male
  Weight: 72.5 kg

DRUGS (8)
  1. ISOSORBIDE. [Concomitant]
     Active Substance: ISOSORBIDE
  2. LEUPROLIDE ACETATE. [Suspect]
     Active Substance: LEUPROLIDE ACETATE
     Dates: end: 20180604
  3. ASPIRIN. [Concomitant]
     Active Substance: ASPIRIN
  4. DOCETAXEL. [Suspect]
     Active Substance: DOCETAXEL
     Dates: end: 20181022
  5. METOPROLOL. [Concomitant]
     Active Substance: METOPROLOL
  6. CASODEX [Suspect]
     Active Substance: BICALUTAMIDE
     Dates: end: 20181029
  7. PANTOPRAZOLE [Concomitant]
     Active Substance: PANTOPRAZOLE
  8. ATORVASTATIN [Concomitant]
     Active Substance: ATORVASTATIN

REACTIONS (2)
  - Neutrophil count decreased [None]
  - Body temperature increased [None]

NARRATIVE: CASE EVENT DATE: 20181029
